FAERS Safety Report 20931213 (Version 5)
Quarter: 2025Q3

REPORT INFORMATION
  Report Type: Report from Study
  Country: UY (occurrence: UY)
  Receive Date: 20220608
  Receipt Date: 20250711
  Transmission Date: 20251020
  Serious: Yes (Hospitalization, Other)
  Sender: TAKEDA
  Company Number: UY-TAKEDA-2022TUS031938

PATIENT
  Age: 30 Year
  Sex: Male

DRUGS (7)
  1. IDURSULFASE [Suspect]
     Active Substance: IDURSULFASE
     Indication: Mucopolysaccharidosis II
     Dosage: UNK, 1/WEEK
     Dates: start: 2014
  2. IDURSULFASE [Suspect]
     Active Substance: IDURSULFASE
     Dosage: 5.2 DOSAGE FORM, 1/WEEK
     Dates: start: 2016
  3. IDURSULFASE [Suspect]
     Active Substance: IDURSULFASE
  4. IDURSULFASE [Suspect]
     Active Substance: IDURSULFASE
  5. IDURSULFASE [Suspect]
     Active Substance: IDURSULFASE
  6. IDURSULFASE [Suspect]
     Active Substance: IDURSULFASE
  7. IDURSULFASE [Suspect]
     Active Substance: IDURSULFASE
     Dosage: UNK UNK, 1/WEEK

REACTIONS (4)
  - Lower respiratory tract infection [Unknown]
  - Respiratory tract infection [Recovering/Resolving]
  - Product use issue [Unknown]
  - Product distribution issue [Unknown]

NARRATIVE: CASE EVENT DATE: 20220527
